FAERS Safety Report 9236713 (Version 2)
Quarter: 2013Q2

REPORT INFORMATION
  Report Type: Spontaneous
  Country: US (occurrence: US)
  Receive Date: 20130417
  Receipt Date: 20130515
  Transmission Date: 20140414
  Serious: Yes (Death)
  Sender: FDA-Public Use
  Company Number: US-GLAXOSMITHKLINE-A1020398A

PATIENT
  Age: 6 Year
  Sex: Female

DRUGS (4)
  1. FLOLAN [Suspect]
     Indication: PULMONARY ARTERIAL HYPERTENSION
     Dosage: 25NGKM CONTINUOUS
     Route: 042
     Dates: start: 20130206
  2. DIGOXIN [Concomitant]
  3. LASIX [Concomitant]
  4. SILDENAFIL [Concomitant]

REACTIONS (2)
  - Convulsion [Fatal]
  - Cardio-respiratory arrest [Unknown]
